FAERS Safety Report 22166638 (Version 1)
Quarter: 2023Q2

REPORT INFORMATION
  Report Type: Spontaneous
  Country: US (occurrence: None)
  Receive Date: 20230401
  Receipt Date: 20230401
  Transmission Date: 20230722
  Serious: No
  Sender: FDA-Public Use
  Company Number: None

PATIENT
  Age: 46 Year
  Sex: Female
  Weight: 85.95 kg

DRUGS (2)
  1. ADAKVEO [Suspect]
     Active Substance: CRIZANLIZUMAB-TMCA
     Indication: Sickle cell anaemia with crisis
     Route: 041
     Dates: start: 20230401, end: 20230401
  2. Aakveo [Concomitant]
     Dates: start: 20230401, end: 20230401

REACTIONS (6)
  - Aphasia [None]
  - Sickle cell anaemia with crisis [None]
  - Headache [None]
  - Back pain [None]
  - Arthralgia [None]
  - Infusion related reaction [None]

NARRATIVE: CASE EVENT DATE: 20230401
